FAERS Safety Report 6215889-3 (Version None)
Quarter: 2009Q2

REPORT INFORMATION
  Report Type: 
  Country: None (occurrence: None)
  Receive Date: 20090605
  Receipt Date: 20090601
  Transmission Date: 20091009
  Serious: Yes (Death)
  Sender: FDA-Public Use
  Company Number: US-ROCHE-636053

PATIENT
  Sex: Female
  Weight: 114.3 kg

DRUGS (1)
  1. CAPECITABINE [Suspect]
     Indication: GASTRIC CANCER
     Route: 048
     Dates: start: 20090416

REACTIONS (1)
  - DEATH [None]
